FAERS Safety Report 8828764 (Version 3)
Quarter: 2013Q1

REPORT INFORMATION
  Report Type: Report from Study
  Country: US (occurrence: US)
  Receive Date: 20121008
  Receipt Date: 20130225
  Transmission Date: 20140127
  Serious: Yes (Other)
  Sender: FDA-Public Use
  Company Number: US-009507513-1201USA00478

PATIENT
  Age: 87 None
  Sex: Male

DRUGS (7)
  1. ZOCOR [Suspect]
     Dosage: UNK
     Route: 048
  2. SAXAGLIPTIN [Suspect]
     Indication: TYPE 2 DIABETES MELLITUS
     Dosage: UNK
     Dates: start: 20100831, end: 20111208
  3. METFORMIN HYDROCHLORIDE [Suspect]
     Indication: TYPE 2 DIABETES MELLITUS
     Dosage: 2000 MG, UNK
     Dates: end: 20120814
  4. AMARYL [Suspect]
     Indication: TYPE 2 DIABETES MELLITUS
     Dosage: 4 MG, UNK
     Dates: start: 20110117
  5. AMARYL [Suspect]
     Dosage: 2 MG, UNK
  6. ASPIRIN [Concomitant]
  7. LASIX (FUROSEMIDE) [Concomitant]
     Dosage: UNK
     Dates: start: 20111126

REACTIONS (2)
  - Hepatic cirrhosis [Not Recovered/Not Resolved]
  - Basal cell carcinoma [Recovering/Resolving]
